FAERS Safety Report 4783154-7 (Version None)
Quarter: 2005Q3

REPORT INFORMATION
  Report Type: 
  Country: None (occurrence: None)
  Receive Date: 20050929
  Receipt Date: 20050801
  Transmission Date: 20060218
  Serious: Yes (Hospitalization)
  Sender: FDA-Public Use
  Company Number: US-GLAXOSMITHKLINE-A0568482A

PATIENT
  Age: 79 Year
  Sex: Male

DRUGS (1)
  1. FORTAZ [Suspect]
     Indication: DRUG USE FOR UNKNOWN INDICATION
     Dosage: 2G TWICE PER DAY
     Route: 065
     Dates: start: 20050728, end: 20050804

REACTIONS (1)
  - INCORRECT ROUTE OF DRUG ADMINISTRATION [None]
